FAERS Safety Report 9333305 (Version 1)
Quarter: 2013Q2

REPORT INFORMATION
  Report Type: Spontaneous
  Country: FR (occurrence: FR)
  Receive Date: 20130606
  Receipt Date: 20130606
  Transmission Date: 20140414
  Serious: Yes (Other)
  Sender: FDA-Public Use
  Company Number: PHHY2013FR057141

PATIENT
  Age: 63 Year
  Sex: Female

DRUGS (6)
  1. TRILEPTAL [Suspect]
  2. TAXOTERE [Suspect]
     Indication: BREAST CANCER
     Dosage: 160 MG, UNK
     Route: 042
     Dates: start: 20111214
  3. TAXOTERE [Suspect]
     Dosage: 480 MG, UNK
  4. KARDEGIC [Suspect]
     Route: 048
  5. MICARDIS [Suspect]
     Indication: HYPERTENSION
     Route: 048
  6. VELITEN [Concomitant]

REACTIONS (2)
  - Anaemia [Recovered/Resolved]
  - Dysgeusia [Recovered/Resolved]
